FAERS Safety Report 5671964-3 (Version None)
Quarter: 2008Q1

REPORT INFORMATION
  Report Type: 
  Country: None (occurrence: None)
  Receive Date: 20080314
  Receipt Date: 20080229
  Transmission Date: 20080703
  Serious: Yes (Life-Threatening, Hospitalization)
  Sender: FDA-Public Use
  Company Number: 8030233

PATIENT
  Age: 54 Year
  Sex: Female

DRUGS (3)
  1. PREDNISOLONE [Suspect]
     Indication: SYSTEMIC LUPUS ERYTHEMATOSUS
     Dosage: 30 MG 1/D
  2. PREDNISOLONE [Suspect]
     Indication: SYSTEMIC LUPUS ERYTHEMATOSUS
     Dosage: 15 MG 1/D
  3. HYDROXYCHLOROQUINE SULFATE [Suspect]
     Indication: SYSTEMIC LUPUS ERYTHEMATOSUS
     Dosage: 200 MG 2/D

REACTIONS (28)
  - ABDOMINAL DISTENSION [None]
  - ABDOMINAL PAIN [None]
  - ABDOMINAL RIGIDITY [None]
  - ACUTE ABDOMEN [None]
  - ANEURYSM RUPTURED [None]
  - ASCITES [None]
  - BACK PAIN [None]
  - BACTERIA BLOOD IDENTIFIED [None]
  - BLOOD CREATINE INCREASED [None]
  - BLOOD PRESSURE DECREASED [None]
  - COLD SWEAT [None]
  - CONSTIPATION [None]
  - CULTURE TISSUE SPECIMEN POSITIVE [None]
  - DIARRHOEA [None]
  - DNA ANTIBODY POSITIVE [None]
  - ECCHYMOSIS [None]
  - HERPES ZOSTER [None]
  - HYPOVOLAEMIC SHOCK [None]
  - MYCOTIC ANEURYSM [None]
  - NAUSEA [None]
  - OEDEMA PERIPHERAL [None]
  - PROCEDURAL HYPERTENSION [None]
  - RENAL ANEURYSM [None]
  - RENAL DISORDER [None]
  - RENAL IMPAIRMENT [None]
  - RETROPERITONEAL HAEMATOMA [None]
  - SALMONELLOSIS [None]
  - VOMITING [None]
